FAERS Safety Report 10574783 (Version 3)
Quarter: 2014Q4

REPORT INFORMATION
  Report Type: Spontaneous
  Country: BR (occurrence: BR)
  Receive Date: 20141110
  Receipt Date: 20141121
  Transmission Date: 20150529
  Serious: Yes (Hospitalization)
  Sender: FDA-Public Use
  Company Number: BR-BIOMARINAP-BR-2014-104560

PATIENT
  Age: 7 Year
  Sex: Female
  Weight: 21.4 kg

DRUGS (2)
  1. NAGLAZYME [Suspect]
     Active Substance: GALSULFASE
     Indication: MUCOPOLYSACCHARIDOSIS VI
     Dosage: 15 MG, QW
     Route: 042
     Dates: start: 20130116
  2. RINOSORO [Concomitant]
     Indication: NASAL IRRIGATION

REACTIONS (5)
  - Pneumonia [Unknown]
  - Bloody discharge [Recovering/Resolving]
  - Fatigue [Recovering/Resolving]
  - Dyspnoea [Recovering/Resolving]
  - Urethritis [Unknown]

NARRATIVE: CASE EVENT DATE: 20141028
